FAERS Safety Report 8360190-5 (Version None)
Quarter: 2012Q2

REPORT INFORMATION
  Report Type: 
  Country: None (occurrence: None)
  Receive Date: 20120515
  Receipt Date: 20120504
  Transmission Date: 20120825
  Serious: Yes (Hospitalization)
  Sender: FDA-Public Use
  Company Number: US-SANOFI-AVENTIS-2012SA031793

PATIENT
  Age: 80 Year
  Sex: Male

DRUGS (4)
  1. INSULIN [Concomitant]
  2. DEXTROSE 5% [Concomitant]
  3. SORBITOL 50PC INJ [Concomitant]
  4. KAYEXALATE [Suspect]
     Dosage: MULTIPLE DOSES
     Route: 048

REACTIONS (9)
  - HAEMATOCRIT DECREASED [None]
  - SHOCK [None]
  - RECTAL HAEMORRHAGE [None]
  - HAEMOGLOBIN DECREASED [None]
  - FAECES DISCOLOURED [None]
  - BACTERAEMIA [None]
  - GASTROINTESTINAL MUCOSAL NECROSIS [None]
  - INJURY [None]
  - ULCER [None]
